FAERS Safety Report 14905266 (Version 1)
Quarter: 2018Q2

REPORT INFORMATION
  Report Type: Spontaneous
  Country: US (occurrence: US)
  Receive Date: 20180517
  Receipt Date: 20180517
  Transmission Date: 20180711
  Serious: No
  Sender: FDA-Public Use
  Company Number: US-SA-2017SA240868

PATIENT
  Age: 66 Year
  Sex: Male
  Weight: 77.11 kg

DRUGS (3)
  1. LANTUS [Suspect]
     Active Substance: INSULIN GLARGINE
     Indication: TYPE 1 DIABETES MELLITUS
     Dosage: 11 UNSPECIFIED UNITS IN MORNING AND 8 UNSPECIFIED UNITS PM
     Route: 051
  2. LANTUS [Suspect]
     Active Substance: INSULIN GLARGINE
     Indication: TYPE 1 DIABETES MELLITUS
     Dosage: 11 UNSPECIFIED UNITS IN MORNING AND 8 UNSPECIFIED UNITS PM
     Route: 051
     Dates: start: 1997
  3. HUMALOG [Concomitant]
     Active Substance: INSULIN LISPRO
     Indication: DIABETES MELLITUS
     Route: 065

REACTIONS (3)
  - Hypoglycaemia [Recovered/Resolved]
  - Product use issue [Unknown]
  - Blood glucose increased [Unknown]
